FAERS Safety Report 19576712 (Version 1)
Quarter: 2021Q3

REPORT INFORMATION
  Report Type: Report from Study
  Country: US (occurrence: US)
  Receive Date: 20210719
  Receipt Date: 20210719
  Transmission Date: 20211014
  Serious: No
  Sender: FDA-Public Use
  Company Number: NVSC2021US154304

PATIENT
  Sex: Female

DRUGS (1)
  1. ENTRESTO [Suspect]
     Active Substance: SACUBITRIL\VALSARTAN
     Indication: CARDIAC FAILURE
     Dosage: 49.51 MG, ONCE2SDO
     Route: 048

REACTIONS (6)
  - Hypotension [Unknown]
  - Hypersensitivity [Unknown]
  - Memory impairment [Unknown]
  - Ear infection [Unknown]
  - Asthenia [Unknown]
  - Cough [Unknown]
